FAERS Safety Report 17148446 (Version 4)
Quarter: 2020Q2

REPORT INFORMATION
  Report Type: Report from Study
  Country: None (occurrence: AU)
  Receive Date: 20191212
  Receipt Date: 20200519
  Transmission Date: 20200713
  Serious: Yes (Hospitalization, Other)
  Sender: FDA-Public Use
  Company Number: AU-ABBVIE-19K-008-3185366-00

PATIENT
  Age: 63 Year
  Sex: Female
  Weight: 65 kg

DRUGS (2)
  1. HUMIRA [Suspect]
     Active Substance: ADALIMUMAB
     Route: 058
     Dates: end: 202004
  2. HUMIRA [Suspect]
     Active Substance: ADALIMUMAB
     Indication: PSORIATIC ARTHROPATHY
     Route: 058
     Dates: start: 20181227, end: 20191017

REACTIONS (9)
  - Foot operation [Recovered/Resolved]
  - Foot deformity [Recovered/Resolved]
  - Foot deformity [Unknown]
  - Metatarsalgia [Recovered/Resolved]
  - Limb injury [Unknown]
  - Haematoma infection [Recovered/Resolved]
  - Procedural pain [Unknown]
  - Wound [Not Recovered/Not Resolved]
  - Joint dislocation [Unknown]

NARRATIVE: CASE EVENT DATE: 2019
